FAERS Safety Report 25760932 (Version 1)
Quarter: 2025Q3

REPORT INFORMATION
  Report Type: Spontaneous
  Country: CH (occurrence: CH)
  Receive Date: 20250904
  Receipt Date: 20250904
  Transmission Date: 20251021
  Serious: Yes (Other)
  Sender: EISAI
  Company Number: CH-Eisai-EC-2025-195435

PATIENT
  Age: 60 Year

DRUGS (2)
  1. LENVIMA [Suspect]
     Active Substance: LENVATINIB
     Indication: Renal cell carcinoma
     Route: 048
  2. KEYTRUDA [Suspect]
     Active Substance: PEMBROLIZUMAB
     Indication: Renal cell carcinoma
     Route: 042

REACTIONS (2)
  - Osteoradionecrosis [Recovering/Resolving]
  - Malignant neoplasm progression [Not Recovered/Not Resolved]
